FAERS Safety Report 6180567-6 (Version None)
Quarter: 2009Q2

REPORT INFORMATION
  Report Type: 
  Country: None (occurrence: None)
  Receive Date: 20090504
  Receipt Date: 20090424
  Transmission Date: 20091009
  Serious: Yes (Other)
  Sender: FDA-Public Use
  Company Number: CHPA2009US10403

PATIENT
  Age: 86 Year
  Sex: Male

DRUGS (1)
  1. EX-LAX UNKNOWN SENNA (NCH)(SENNA GLYCOSIDES (CA SALTS OF PURIFIED SENN [Suspect]
     Dosage: , ORAL
     Route: 048

REACTIONS (3)
  - ANXIETY [None]
  - BREAST CANCER MALE [None]
  - PENIS CARCINOMA [None]
